FAERS Safety Report 9156274 (Version 2)
Quarter: 2013Q2

REPORT INFORMATION
  Report Type: Spontaneous
  Country: DE (occurrence: DE)
  Receive Date: 20130311
  Receipt Date: 20130416
  Transmission Date: 20140414
  Serious: Yes (Death, Hospitalization)
  Sender: FDA-Public Use
  Company Number: DE-OTSUKA-EU-2013-10054

PATIENT
  Age: 82 Year
  Sex: Male

DRUGS (2)
  1. SAMSCA [Suspect]
     Indication: HYPONATRAEMIA
     Route: 065
  2. SAMSCA [Suspect]
     Indication: OFF LABEL USE

REACTIONS (3)
  - Malignant neoplasm progression [Fatal]
  - Organ failure [Fatal]
  - Off label use [Unknown]
